FAERS Safety Report 5081546-2 (Version None)
Quarter: 2006Q3

REPORT INFORMATION
  Report Type: 
  Country: None (occurrence: None)
  Receive Date: 20060811
  Receipt Date: 20060728
  Transmission Date: 20061208
  Serious: Yes (Other)
  Sender: FDA-Public Use
  Company Number: 2006S1006493

PATIENT
  Age: 65 Year
  Sex: Male
  Weight: 57.1532 kg

DRUGS (3)
  1. FENTANYL TRANSDERMAL SYSTEM [Suspect]
     Indication: BACK PAIN
     Dosage: 50 UG/HR;Q3D;TDER
     Route: 062
     Dates: start: 20060621
  2. FENTANYL TRANSDERMAL SYSTEM [Suspect]
  3. METAXALONE [Concomitant]

REACTIONS (10)
  - AGITATION [None]
  - ANOREXIA [None]
  - ASTHENIA [None]
  - DIZZINESS [None]
  - DRUG EFFECT INCREASED [None]
  - DRUG INTOLERANCE [None]
  - DYSPHAGIA [None]
  - FORMICATION [None]
  - NAUSEA [None]
  - SENSORY DISTURBANCE [None]
